FAERS Safety Report 4381522-9 (Version None)
Quarter: 2004Q2

REPORT INFORMATION
  Report Type: 
  Country: None (occurrence: None)
  Receive Date: 20040621
  Receipt Date: 20040607
  Transmission Date: 20050107
  Serious: Yes (Hospitalization)
  Sender: FDA-Public Use
  Company Number: AU-GLAXOSMITHKLINE-B0335216A

PATIENT
  Sex: Female

DRUGS (1)
  1. ZYBAN [Suspect]
     Route: 065
     Dates: end: 20040603

REACTIONS (6)
  - BLOOD PRESSURE INCREASED [None]
  - DYSSTASIA [None]
  - HALLUCINATION, VISUAL [None]
  - MYOCARDIAL INFARCTION [None]
  - TREMOR [None]
  - VOMITING [None]
